FAERS Safety Report 13084253 (Version 1)
Quarter: 2017Q1

REPORT INFORMATION
  Report Type: Spontaneous
  Country: US (occurrence: US)
  Receive Date: 20170101
  Receipt Date: 20170101
  Transmission Date: 20170428
  Serious: Yes (Disabling)
  Sender: FDA-Public Use
  Company Number: None

PATIENT
  Age: 17 Year
  Sex: Male
  Weight: 67.5 kg

DRUGS (1)
  1. MONTELUKAST SOD [Suspect]
     Active Substance: MONTELUKAST SODIUM
     Indication: HYPERSENSITIVITY
     Dosage: ?          QUANTITY:30 TABLET(S);?
     Route: 048
     Dates: start: 20161230, end: 20161231

REACTIONS (4)
  - Influenza like illness [None]
  - Swelling [None]
  - Palpitations [None]
  - Paraesthesia [None]

NARRATIVE: CASE EVENT DATE: 20161231
